FAERS Safety Report 6573471-2 (Version None)
Quarter: 2010Q1

REPORT INFORMATION
  Report Type: 
  Country: None (occurrence: None)
  Receive Date: 20100204
  Receipt Date: 20100204
  Transmission Date: 20100710
  Serious: Yes (Other)
  Sender: FDA-Public Use
  Company Number: None

PATIENT
  Age: 62 Year
  Sex: Male
  Weight: 122.4712 kg

DRUGS (2)
  1. SUBOXONE [Suspect]
     Indication: ANALGESIC THERAPY
     Dosage: 8 MG - 2 MG TABS 2 X DAY UNDER TONGUE 1-16 PM 1-17 AM
     Dates: start: 20100116
  2. SUBOXONE [Suspect]
     Indication: ANALGESIC THERAPY
     Dosage: 8 MG - 2 MG TABS 2 X DAY UNDER TONGUE 1-16 PM 1-17 AM
     Dates: start: 20100117

REACTIONS (7)
  - ANURIA [None]
  - DIZZINESS [None]
  - DYSURIA [None]
  - ERYTHEMA [None]
  - HYPERHIDROSIS [None]
  - NAUSEA [None]
  - PRURITUS [None]
